FAERS Safety Report 15982467 (Version 2)
Quarter: 2020Q1

REPORT INFORMATION
  Report Type: Spontaneous
  Country: FR (occurrence: FR)
  Receive Date: 20190219
  Receipt Date: 20200224
  Transmission Date: 20200409
  Serious: Yes (Hospitalization)
  Sender: FDA-Public Use
  Company Number: FR-PFIZER INC-2019067879

PATIENT
  Age: 40 Year
  Sex: Male

DRUGS (4)
  1. VANCOMYCINE [VANCOMYCIN] [Suspect]
     Active Substance: VANCOMYCIN
     Indication: PNEUMONIA
     Dosage: UNK, 1X/DAY
     Route: 042
     Dates: start: 20180501, end: 20180511
  2. AMIKACINE [AMIKACIN SULFATE] [Concomitant]
     Active Substance: AMIKACIN SULFATE
     Indication: PNEUMONIA
     Dosage: UNK, 1X/DAY
     Dates: start: 20180428, end: 20180501
  3. TAZOCILLINE [Suspect]
     Active Substance: PIPERACILLIN SODIUM\TAZOBACTAM SODIUM
     Indication: PNEUMONIA
     Dosage: UNK, 1X/DAY
     Route: 042
     Dates: start: 20180428, end: 20180511
  4. IOMERON [Suspect]
     Active Substance: IOMEPROL
     Indication: SCAN
     Dosage: UNK
     Route: 042
     Dates: start: 20180508, end: 20180519

REACTIONS (6)
  - Cholestasis [Recovered/Resolved]
  - Hepatocellular injury [Recovered/Resolved]
  - Abdominal pain [Recovered/Resolved]
  - Rash maculo-papular [Recovered/Resolved]
  - Pyrexia [Recovered/Resolved]
  - Pruritus [Recovered/Resolved]

NARRATIVE: CASE EVENT DATE: 20180509
